FAERS Safety Report 9317959 (Version 1)
Quarter: 2013Q2

REPORT INFORMATION
  Report Type: Spontaneous
  Country: US (occurrence: None)
  Receive Date: 20130529
  Receipt Date: 20130529
  Transmission Date: 20140414
  Serious: Yes (Disabling, Other)
  Sender: FDA-Public Use
  Company Number: None

PATIENT
  Age: 70 Year
  Sex: Female
  Weight: 63.5 kg

DRUGS (1)
  1. XGEVA AMGEN [Suspect]
     Indication: BREAST CANCER METASTATIC
     Dosage: INJ.IN ARM
     Dates: start: 20101208, end: 20120718

REACTIONS (4)
  - Tooth fracture [None]
  - Pain [None]
  - Limb asymmetry [None]
  - X-ray limb abnormal [None]
